FAERS Safety Report 7691515-1 (Version None)
Quarter: 2011Q3

REPORT INFORMATION
  Report Type: 
  Country: None (occurrence: None)
  Receive Date: 20110818
  Receipt Date: 20110812
  Transmission Date: 20111222
  Serious: Yes (Death)
  Sender: FDA-Public Use
  Company Number: KR-BAYER-2011-071922

PATIENT
  Age: 66 Year
  Sex: Female
  Weight: 68 kg

DRUGS (9)
  1. ZANTAC [Concomitant]
     Indication: GASTROINTESTINAL DISORDER
     Dosage: 300 MG, QD
     Dates: start: 20110329, end: 20110607
  2. SORAFENIB (RAF KINASE INHIBITOR) [Suspect]
     Indication: HEPATIC NEOPLASM MALIGNANT
     Dosage: 400 MG, BID
     Dates: start: 20110527, end: 20110624
  3. MUCOSTA [Concomitant]
     Indication: GASTROINTESTINAL DISORDER
     Dosage: 300 MG, QD
     Dates: start: 20100717, end: 20110607
  4. GANATON [Concomitant]
     Indication: GASTROINTESTINAL DISORDER
     Dosage: 150 MG, QD
     Dates: start: 20110329, end: 20110607
  5. MEGACE [Concomitant]
     Indication: INCREASED APPETITE
     Dosage: 20 ML, QD
     Dates: start: 20110502
  6. ZEFFIX [Concomitant]
     Dosage: 100 MG, QD
     Dates: start: 20100101
  7. LANSOPRAZOLE [Concomitant]
     Indication: GASTROINTESTINAL DISORDER
     Dosage: 15 MG, QD
     Dates: start: 20110608
  8. TRAMADOL HCL [Concomitant]
     Indication: ANALGESIC THERAPY
     Dosage: 100 MG, QD
     Dates: start: 20110423, end: 20110607
  9. HEPSERA [Concomitant]
     Dosage: 10 MG, QD
     Dates: start: 20110607

REACTIONS (1)
  - HEPATIC FAILURE [None]
